FAERS Safety Report 23307662 (Version 1)
Quarter: 2023Q4

REPORT INFORMATION
  Report Type: Spontaneous
  Country: US (occurrence: US)
  Receive Date: 20231218
  Receipt Date: 20231218
  Transmission Date: 20240110
  Serious: Yes (Hospitalization)
  Sender: FDA-Public Use
  Company Number: US-MYLANLABS-2023M1130419

PATIENT
  Sex: Male

DRUGS (4)
  1. CELEBREX [Suspect]
     Active Substance: CELECOXIB
     Indication: Product used for unknown indication
     Dosage: UNK
     Route: 065
  2. XELJANZ XR [Suspect]
     Active Substance: TOFACITINIB CITRATE
     Indication: Product used for unknown indication
     Dosage: 5 MILLIGRAM, BID (1 TABLET TWO TIMES A DAY)
     Route: 001
     Dates: start: 201904
  3. NASONEX [Concomitant]
     Active Substance: MOMETASONE FUROATE
     Dosage: UNK
     Route: 065
  4. CLARITIN [Concomitant]
     Active Substance: LORATADINE
     Dosage: UNK
     Route: 065

REACTIONS (1)
  - Spinal fusion surgery [Unknown]
